FAERS Safety Report 16931780 (Version 1)
Quarter: 2019Q4

REPORT INFORMATION
  Report Type: Spontaneous
  Country: US (occurrence: US)
  Receive Date: 20191017
  Receipt Date: 20191017
  Transmission Date: 20200122
  Serious: Yes (Other)
  Sender: FDA-Public Use
  Company Number: US-ASTRAZENECA-2019SF45390

PATIENT
  Sex: Female
  Weight: 93 kg

DRUGS (7)
  1. NEXIUM [Suspect]
     Active Substance: ESOMEPRAZOLE MAGNESIUM
     Indication: DYSPHAGIA
     Route: 048
  2. WATER PILL [Concomitant]
     Active Substance: UNSPECIFIED INGREDIENT
  3. NEXIUM [Suspect]
     Active Substance: ESOMEPRAZOLE MAGNESIUM
     Indication: PAIN
     Route: 048
  4. TOPROL XL [Suspect]
     Active Substance: METOPROLOL SUCCINATE
     Indication: HEART RATE ABNORMAL
     Route: 048
     Dates: start: 2012
  5. TOPROL XL [Suspect]
     Active Substance: METOPROLOL SUCCINATE
     Indication: HEART RATE ABNORMAL
     Route: 048
  6. FLOVENT DISKUS [Concomitant]
     Active Substance: FLUTICASONE PROPIONATE
  7. NEXIUM 24HR [Suspect]
     Active Substance: ESOMEPRAZOLE MAGNESIUM
     Route: 048

REACTIONS (17)
  - Drug ineffective [Unknown]
  - Blood cholesterol increased [Unknown]
  - Loss of consciousness [Unknown]
  - Breast cancer [Unknown]
  - Skin lesion [Unknown]
  - Pruritus [Unknown]
  - Hot flush [Unknown]
  - Dyspnoea [Unknown]
  - Weight increased [Unknown]
  - Heart rate abnormal [Unknown]
  - Blood pressure increased [Unknown]
  - Malaise [Unknown]
  - Vomiting [Unknown]
  - Nausea [Unknown]
  - Arthritis [Unknown]
  - Limb discomfort [Unknown]
  - Infection [Unknown]
